FAERS Safety Report 13033008 (Version 1)
Quarter: 2016Q4

REPORT INFORMATION
  Report Type: Report from Study
  Country: US (occurrence: US)
  Receive Date: 20161215
  Receipt Date: 20161215
  Transmission Date: 20170207
  Serious: Yes (Other)
  Sender: FDA-Public Use
  Company Number: US-AMGEN-USASL2016176293

PATIENT
  Age: 36 Year
  Sex: Female

DRUGS (1)
  1. ENBREL [Suspect]
     Active Substance: ETANERCEPT
     Indication: RHEUMATOID ARTHRITIS
     Dosage: 50 MG, Q3WK
     Route: 065
     Dates: start: 20000101

REACTIONS (2)
  - Intentional product misuse [Unknown]
  - Liver dialysis [Unknown]

NARRATIVE: CASE EVENT DATE: 20000101
